FAERS Safety Report 5661207-9 (Version None)
Quarter: 2008Q1

REPORT INFORMATION
  Report Type: 
  Country: None (occurrence: None)
  Receive Date: 20080312
  Receipt Date: 20080222
  Transmission Date: 20080703
  Serious: Yes (Life-Threatening, Hospitalization, Congenital Anomaly)
  Sender: FDA-Public Use
  Company Number: A0640667A

PATIENT
  Sex: Female

DRUGS (6)
  1. PAXIL [Suspect]
     Indication: ANXIETY
     Dosage: 20MG PER DAY
     Dates: start: 20000808, end: 20030101
  2. PAXIL CR [Suspect]
     Indication: DEPRESSION
     Dosage: 25MG PER DAY
     Dates: start: 20030201, end: 20030401
  3. ZOFRAN [Concomitant]
     Dates: start: 20030801, end: 20031201
  4. ZYRTEC [Concomitant]
     Dates: start: 20031027
  5. RANITIDINE [Concomitant]
     Dates: start: 20031001, end: 20050101
  6. VITAMIN TAB [Concomitant]

REACTIONS (23)
  - ATRIAL SEPTAL DEFECT [None]
  - BUNDLE BRANCH BLOCK RIGHT [None]
  - CARDIAC MURMUR [None]
  - CARDIOMEGALY [None]
  - CREPITATIONS [None]
  - CYANOSIS [None]
  - DECREASED APPETITE [None]
  - DRUG EXPOSURE DURING PREGNANCY [None]
  - FALLOT'S TETRALOGY [None]
  - FATIGUE [None]
  - HEART RATE INCREASED [None]
  - INJURY [None]
  - LUNG DISORDER [None]
  - ORAL MUCOSAL DISCOLOURATION [None]
  - PAIN [None]
  - PERSISTENT FOETAL CIRCULATION [None]
  - PLEURAL EFFUSION [None]
  - PULMONARY VALVE STENOSIS [None]
  - RESPIRATORY DISTRESS [None]
  - RESPIRATORY FAILURE [None]
  - RIGHT VENTRICULAR HYPERTROPHY [None]
  - SINUS BRADYCARDIA [None]
  - VENTRICULAR SEPTAL DEFECT [None]
